FAERS Safety Report 10423849 (Version 2)
Quarter: 2014Q4

REPORT INFORMATION
  Report Type: Spontaneous
  Country: US (occurrence: None)
  Receive Date: 20140722
  Receipt Date: 20141020
  Transmission Date: 20150528
  Serious: No
  Sender: FDA-Public Use
  Company Number: AEGR000489

PATIENT
  Age: 41 Year
  Sex: Male
  Weight: 89.8 kg

DRUGS (3)
  1. JUXTAPID [Suspect]
     Active Substance: LOMITAPIDE MESYLATE
     Indication: TYPE IIA HYPERLIPIDAEMIA
     Route: 048
     Dates: start: 201303, end: 201304
  2. ZETIA [Concomitant]
     Active Substance: EZETIMIBE
  3. LIPITOR [Concomitant]
     Active Substance: ATORVASTATIN CALCIUM

REACTIONS (7)
  - Gastrointestinal disorder [None]
  - Flushing [None]
  - Inappropriate schedule of drug administration [None]
  - Abdominal discomfort [None]
  - Hypersensitivity [None]
  - Drug dose omission [None]
  - Diarrhoea [None]
